FAERS Safety Report 8915664 (Version 5)
Quarter: 2012Q4

REPORT INFORMATION
  Report Type: 
  Country: US (occurrence: US)
  Receive Date: 20121119
  Receipt Date: 20121227
  Transmission Date: 20130627
  Serious: Yes (Other)
  Sender: FDA-Public Use
  Company Number: US-TEVA-370403USA

PATIENT
  Age: 22 Year
  Sex: Female

DRUGS (2)
  1. CLARAVIS [Suspect]
     Dosage: 60 Milligram Daily;
     Route: 048
     Dates: start: 20120810, end: 20121104
  2. BIRTH CONTROL PILLS [Concomitant]
     Indication: CONTRACEPTION
     Route: 048

REACTIONS (1)
  - Unintended pregnancy [Recovered/Resolved]
